FAERS Safety Report 11537029 (Version 1)
Quarter: 2015Q3

REPORT INFORMATION
  Report Type: Spontaneous
  Country: US (occurrence: US)
  Receive Date: 20150922
  Receipt Date: 20150922
  Transmission Date: 20151125
  Serious: No
  Sender: FDA-Public Use
  Company Number: US-LPDUSPRD-20150147

PATIENT
  Sex: Female

DRUGS (1)
  1. BETAMETHASONE SODIUM PHOS/BETAMETHASONE ACETATE INJ SUSP, USP (40042-0 [Suspect]
     Active Substance: BETAMETHASONE ACETATE\BETAMETHASONE SODIUM PHOSPHATE
     Dosage: DOSE NOT PROVIDED
     Route: 065

REACTIONS (1)
  - Purpura [Recovered/Resolved]
